FAERS Safety Report 8438416-9 (Version None)
Quarter: 2012Q2

REPORT INFORMATION
  Report Type: 
  Country: None (occurrence: None)
  Receive Date: 20120614
  Receipt Date: 20120604
  Transmission Date: 20120825
  Serious: Yes (Hospitalization, Other)
  Sender: FDA-Public Use
  Company Number: US-ELI_LILLY_AND_COMPANY-US201109004843

PATIENT
  Sex: Female
  Weight: 74.83 kg

DRUGS (5)
  1. FORTEO [Suspect]
     Dosage: 20 UG, QD
     Route: 058
  2. FORTEO [Suspect]
     Indication: OSTEOPOROSIS
     Dosage: 20 UG, QD
     Route: 058
  3. FORTEO [Suspect]
     Dosage: 20 UG, QD
     Route: 058
  4. FORTEO [Suspect]
     Dosage: 20 UG, QD
     Route: 058
  5. FORTEO [Suspect]
     Dosage: 20 UG, QD
     Route: 058

REACTIONS (12)
  - ARTHROPATHY [None]
  - FALL [None]
  - INCORRECT PRODUCT STORAGE [None]
  - DRUG DOSE OMISSION [None]
  - BLISTER [None]
  - INJECTION SITE ERYTHEMA [None]
  - ARTHRALGIA [None]
  - HIP SURGERY [None]
  - PAIN IN EXTREMITY [None]
  - BONE PAIN [None]
  - INJECTION SITE PAIN [None]
  - DEVICE BREAKAGE [None]
